FAERS Safety Report 10016071 (Version 1)
Quarter: 2014Q1

REPORT INFORMATION
  Report Type: Spontaneous
  Country: US (occurrence: US)
  Receive Date: 20140317
  Receipt Date: 20140317
  Transmission Date: 20141002
  Serious: No
  Sender: FDA-Public Use
  Company Number: US-MYLANLABS-2013S1025650

PATIENT
  Sex: Female

DRUGS (1)
  1. CHLORTHALIDONE TABLETS, USP [Suspect]
     Indication: BLOOD PRESSURE INCREASED
     Route: 048
     Dates: start: 201310

REACTIONS (2)
  - Pruritus [Not Recovered/Not Resolved]
  - Reaction to drug excipients [Not Recovered/Not Resolved]
